FAERS Safety Report 7011831-6 (Version None)
Quarter: 2010Q3

REPORT INFORMATION
  Report Type: 
  Country: None (occurrence: None)
  Receive Date: 20100923
  Receipt Date: 20090821
  Transmission Date: 20110219
  Serious: No
  Sender: FDA-Public Use
  Company Number: US-WYE-H10699909

PATIENT
  Age: 48 Year
  Sex: Female

DRUGS (5)
  1. PREMARIN [Suspect]
     Indication: HORMONE REPLACEMENT THERAPY
     Route: 048
     Dates: start: 19910101
  2. NAPROXEN [Concomitant]
     Indication: MUSCULOSKELETAL PAIN
     Route: 065
     Dates: start: 20090701
  3. MELATONIN [Suspect]
  4. LORAZEPAM [Suspect]
  5. DIPHENHYDRAMINE HCL [Suspect]

REACTIONS (9)
  - ACNE [None]
  - ANXIETY [None]
  - DRUG INEFFECTIVE [None]
  - HAIR TEXTURE ABNORMAL [None]
  - INSOMNIA [None]
  - MUSCULOSKELETAL PAIN [None]
  - NIGHT SWEATS [None]
  - NONSPECIFIC REACTION [None]
  - URTICARIA [None]
